FAERS Safety Report 4356730-3 (Version None)
Quarter: 2004Q2

REPORT INFORMATION
  Report Type: 
  Country: None (occurrence: None)
  Receive Date: 20040507
  Receipt Date: 20040427
  Transmission Date: 20050107
  Serious: Yes (Death, Other)
  Sender: FDA-Public Use
  Company Number: HQWYE626228APR04

PATIENT
  Age: 68 Year
  Sex: Female

DRUGS (6)
  1. PROTONIX [Suspect]
     Indication: LOWER GASTROINTESTINAL HAEMORRHAGE
     Dosage: 40 MG 2X PER 1 DAY, INTRAVENOUS GASTROINTESTINAL HAEMORRHAGE)
     Route: 042
     Dates: start: 20040101, end: 20040103
  2. SPIRONOLACTONE [Concomitant]
  3. FUROSEMIDE [Concomitant]
  4. PLAVIX [Concomitant]
  5. ASPIRIN [Concomitant]
  6. FERROUS SULFATE TAB [Concomitant]

REACTIONS (3)
  - BODY TEMPERATURE DECREASED [None]
  - BRAIN DEATH [None]
  - HYPERTHERMIA [None]
